FAERS Safety Report 18104121 (Version 1)
Quarter: 2020Q3

REPORT INFORMATION
  Report Type: Spontaneous
  Country: EC (occurrence: EC)
  Receive Date: 20200801
  Receipt Date: 20200801
  Transmission Date: 20201103
  Serious: Yes (Disabling)
  Sender: FDA-Public Use
  Company Number: None

PATIENT
  Age: 52 Year
  Sex: Male
  Weight: 65 kg

DRUGS (3)
  1. DIAREN [Concomitant]
  2. IVERMIN (IVERMECTIN) [Suspect]
     Active Substance: IVERMECTIN
     Indication: COVID-19 PROPHYLAXIS
     Dosage: ?          QUANTITY:2 CAPSULE(S);OTHER FREQUENCY:DURING THREE DAYS;?
     Route: 048
     Dates: start: 20200726, end: 20200728
  3. ENTEROGERMINA [Concomitant]
     Active Substance: BACILLUS SUBTILIS

REACTIONS (2)
  - Overdose [None]
  - Diarrhoea [None]

NARRATIVE: CASE EVENT DATE: 20200729
